FAERS Safety Report 9521795 (Version 1)
Quarter: 2013Q3

REPORT INFORMATION
  Report Type: Spontaneous
  Country: FR (occurrence: FR)
  Receive Date: 20130913
  Receipt Date: 20130913
  Transmission Date: 20140515
  Serious: Yes (Hospitalization, Other)
  Sender: FDA-Public Use
  Company Number: PHHY2013FR101031

PATIENT
  Age: 48 Year
  Sex: Female

DRUGS (5)
  1. ACLASTA [Suspect]
     Indication: OSTEOPOROSIS
     Dosage: 5 MG, UNK
     Route: 042
     Dates: start: 20090420
  2. DAFALGAN [Concomitant]
     Dosage: 20 MG, UNK
  3. PROZAC [Concomitant]
     Dosage: UNK UKN, UNK
  4. DUFASTON [Concomitant]
     Dosage: 10 MG, UNK
  5. IDARAC [Concomitant]
     Dosage: UNK UKN, UNK

REACTIONS (3)
  - Inflammation [Recovered/Resolved]
  - Influenza like illness [Recovered/Resolved]
  - Pain in jaw [Recovering/Resolving]
